FAERS Safety Report 19075080 (Version 1)
Quarter: 2021Q1

REPORT INFORMATION
  Report Type: Spontaneous
  Country: US (occurrence: US)
  Receive Date: 20210330
  Receipt Date: 20210330
  Transmission Date: 20210420
  Serious: No
  Sender: FDA-Public Use
  Company Number: US-ROCHE-2745692

PATIENT
  Sex: Male

DRUGS (4)
  1. VITAMIN C [Concomitant]
     Active Substance: ASCORBIC ACID
  2. COLLAGEN [Concomitant]
     Active Substance: COLLAGEN
     Dosage: ULTRA
  3. SPIRULINA [Concomitant]
     Active Substance: HERBALS\SPIRULINA
  4. ERIVEDGE [Suspect]
     Active Substance: VISMODEGIB
     Indication: BASAL CELL CARCINOMA
     Route: 048

REACTIONS (1)
  - Constipation [Not Recovered/Not Resolved]
